FAERS Safety Report 6804438-4 (Version None)
Quarter: 2010Q2

REPORT INFORMATION
  Report Type: 
  Country: None (occurrence: None)
  Receive Date: 20100628
  Receipt Date: 20070406
  Transmission Date: 20101027
  Serious: No
  Sender: FDA-Public Use
  Company Number: US-PFIZER INC-2007027814

PATIENT
  Sex: Female
  Weight: 41.28 kg

DRUGS (7)
  1. XALATAN [Suspect]
     Indication: GLAUCOMA
     Route: 031
     Dates: start: 20050101
  2. AXID [Concomitant]
     Indication: GASTRITIS
  3. FOSAMAX [Concomitant]
  4. ALLEGRA [Concomitant]
  5. VITAMINS [Concomitant]
  6. CENTRUM SILVER [Concomitant]
  7. ALPHAGAN [Concomitant]

REACTIONS (2)
  - EYE IRRITATION [None]
  - FOREIGN BODY SENSATION IN EYES [None]
